FAERS Safety Report 8561334-2 (Version None)
Quarter: 2012Q3

REPORT INFORMATION
  Report Type: 
  Country: None (occurrence: None)
  Receive Date: 20120802
  Receipt Date: 20120730
  Transmission Date: 20120928
  Serious: No
  Sender: FDA-Public Use
  Company Number: US-TEVA-351315USA

PATIENT
  Age: 90 Year
  Sex: Male
  Weight: 68.1 kg

DRUGS (4)
  1. PROAIR HFA [Suspect]
     Indication: WHEEZING
     Dates: start: 20120720, end: 20120726
  2. PROAIR HFA [Suspect]
     Dates: start: 20120729
  3. DIURETIC (NOS) [Concomitant]
  4. CHOLESTEROL MED (NOS) [Concomitant]

REACTIONS (1)
  - HYPOAESTHESIA [None]
